FAERS Safety Report 4285254-7 (Version None)
Quarter: 2004Q1

REPORT INFORMATION
  Report Type: 
  Country: None (occurrence: None)
  Receive Date: 20040203
  Receipt Date: 20040203
  Transmission Date: 20041129
  Serious: Yes (Hospitalization)
  Sender: FDA-Public Use
  Company Number: None

PATIENT
  Sex: Male

DRUGS (12)
  1. HEPARIN [Suspect]
     Indication: DEEP VENOUS THROMBOSIS PROPHYLAXIS
     Dosage: IV
     Route: 042
  2. METRONIDAZOLE [Concomitant]
  3. LEVOFLOXACIN [Concomitant]
  4. ASPIRIN [Concomitant]
  5. VANCOMYCIN [Concomitant]
  6. LANSOPRAZOLE [Concomitant]
  7. APAP TAB [Concomitant]
  8. FUROSEMIDE [Concomitant]
  9. PHENYLEPHRINE [Concomitant]
  10. DOPAMINE [Concomitant]
  11. POTASSIUM CHLORIDE [Concomitant]
  12. MAGNESIUM SULFATE [Concomitant]

REACTIONS (13)
  - ACTIVATED PARTIAL THROMBOPLASTIN TIME PROLONGED [None]
  - ANAEMIA [None]
  - CATHETER SEPSIS [None]
  - DYSPNOEA [None]
  - HAEMORRHAGE [None]
  - HYPOTENSION [None]
  - OXYGEN CONSUMPTION INCREASED [None]
  - PERICARDIAL HAEMORRHAGE [None]
  - POST PROCEDURAL COMPLICATION [None]
  - POST PROCEDURAL HAEMORRHAGE [None]
  - RENAL FAILURE ACUTE [None]
  - RESPIRATORY FAILURE [None]
  - THORACIC CAVITY DRAINAGE [None]
